FAERS Safety Report 10456069 (Version 1)
Quarter: 2014Q3

REPORT INFORMATION
  Report Type: Spontaneous
  Country: US (occurrence: None)
  Receive Date: 20140915
  Receipt Date: 20140915
  Transmission Date: 20150326
  Serious: Yes (Other)
  Sender: FDA-Public Use
  Company Number: None

PATIENT
  Age: 45 Year
  Sex: Male
  Weight: 106.6 kg

DRUGS (6)
  1. AMPHETAMINES [Suspect]
     Active Substance: AMPHETAMINE
  2. JACKED MUSCLE EXTREME [Suspect]
     Active Substance: DIETARY SUPPLEMENT
     Indication: MUSCLE BUILDING THERAPY
     Route: 048
     Dates: start: 20140814, end: 20140911
  3. ULTIMATE MUSCLE BLACK EDITION [Suspect]
     Active Substance: DIETARY SUPPLEMENT
     Indication: MUSCLE BUILDING THERAPY
     Route: 048
     Dates: start: 20140814, end: 20140911
  4. COCAINE [Suspect]
     Active Substance: COCAINE
  5. JACKED MUSCLE EXTREME [Suspect]
     Active Substance: DIETARY SUPPLEMENT
     Indication: WEIGHT CONTROL
     Route: 048
     Dates: start: 20140814, end: 20140911
  6. METHAMPHETAMINES [Suspect]
     Active Substance: AMPHETAMINE

REACTIONS (1)
  - Drug screen false positive [None]

NARRATIVE: CASE EVENT DATE: 20140911
